FAERS Safety Report 4589744-9 (Version None)
Quarter: 2005Q1

REPORT INFORMATION
  Report Type: 
  Country: None (occurrence: None)
  Receive Date: 20050217
  Receipt Date: 20050208
  Transmission Date: 20050727
  Serious: Yes (Hospitalization)
  Sender: FDA-Public Use
  Company Number: 2005PK00203

PATIENT
  Age: 56 Year
  Sex: Female
  Weight: 65 kg

DRUGS (10)
  1. GEFITINIB [Suspect]
     Indication: NON-SMALL CELL LUNG CANCER
     Dosage: 250 MG DAILY PO
     Route: 048
     Dates: start: 20050119
  2. ENOXAPARIN [Suspect]
     Indication: THROMBOSIS PROPHYLAXIS
     Dosage: 6000 IU DAILY SQ
     Route: 058
     Dates: start: 20041214
  3. ACETYLSALICYLIC ACID SRT [Suspect]
     Indication: THROMBOSIS PROPHYLAXIS
     Dosage: 100  MG DAILY PO
     Route: 048
     Dates: start: 20050105, end: 20050131
  4. NEURONTIN [Concomitant]
  5. DICLOFENAC [Concomitant]
  6. AMITRIPTYLINE HCL [Concomitant]
  7. PANTOPRAZOLE SODIUM [Concomitant]
  8. L-THYROXIN [Concomitant]
  9. DURAGESIC-100 [Concomitant]
  10. VITAMIN E [Concomitant]

REACTIONS (3)
  - BLADDER TAMPONADE [None]
  - DRUG INTERACTION [None]
  - URINARY BLADDER HAEMORRHAGE [None]
